FAERS Safety Report 9313645 (Version 4)
Quarter: 2013Q3

REPORT INFORMATION
  Report Type: Spontaneous
  Country: US (occurrence: US)
  Receive Date: 20130529
  Receipt Date: 20130926
  Transmission Date: 20140515
  Serious: No
  Sender: FDA-Public Use
  Company Number: US-009507513-1305USA010450

PATIENT
  Age: 88 Year
  Sex: Male

DRUGS (4)
  1. ASMANEX TWISTHALER [Suspect]
     Indication: NASOPHARYNGITIS
     Dosage: UNK
     Route: 048
     Dates: start: 20130509
  2. LIPITOR [Concomitant]
  3. ATENOLOL [Concomitant]
  4. BRIMONIDINE TARTRATE [Concomitant]

REACTIONS (4)
  - Drug dose omission [Unknown]
  - Product quality issue [Unknown]
  - Drug ineffective for unapproved indication [Unknown]
  - Off label use [Unknown]
